FAERS Safety Report 9145778 (Version 2)
Quarter: 2013Q2

REPORT INFORMATION
  Report Type: Report from Study
  Country: MX (occurrence: MX)
  Receive Date: 20130307
  Receipt Date: 20130422
  Transmission Date: 20140414
  Serious: Yes (Death, Hospitalization, Other)
  Sender: FDA-Public Use
  Company Number: PHHY2013MX022006

PATIENT
  Age: 88 Year
  Sex: Female

DRUGS (7)
  1. EXELON PATCH [Suspect]
     Indication: SENILE DEMENTIA
     Dosage: 9.5 MG, DAILY
     Route: 062
     Dates: start: 2011
  2. GALVUS [Suspect]
     Indication: DIABETES MELLITUS
     Dosage: 2 DF, DAILY
     Route: 048
     Dates: start: 2011
  3. GLUCOBAY [Concomitant]
     Indication: DIABETES MELLITUS
     Dosage: 2 DF, DAILY
  4. GLIBENCLAMID [Concomitant]
     Indication: DIABETES MELLITUS
  5. METFORMIN [Concomitant]
     Indication: DIABETES MELLITUS
  6. ANGIOTROFIN [Concomitant]
     Indication: ARRHYTHMIA
     Dosage: UNK
     Dates: end: 20120911
  7. PEMIX [Concomitant]
     Dosage: 2 DF, DAILY
     Dates: start: 20130228

REACTIONS (4)
  - Lung neoplasm malignant [Fatal]
  - Cough [Fatal]
  - Pyrexia [Fatal]
  - Malaise [Unknown]
